FAERS Safety Report 9363956 (Version 1)
Quarter: 2013Q2

REPORT INFORMATION
  Report Type: Report from Study
  Country: CA (occurrence: CA)
  Receive Date: 20130624
  Receipt Date: 20130624
  Transmission Date: 20140414
  Serious: Yes (Other)
  Sender: FDA-Public Use
  Company Number: CA-JNJFOC-20130613291

PATIENT
  Sex: Male
  Weight: 89.4 kg

DRUGS (2)
  1. REMICADE [Suspect]
     Indication: COLITIS ULCERATIVE
     Route: 042
     Dates: start: 20100119
  2. ASACOL [Concomitant]
     Route: 065

REACTIONS (1)
  - Pilonidal cyst [Unknown]
